FAERS Safety Report 11310445 (Version 1)
Quarter: 2015Q3

REPORT INFORMATION
  Report Type: Spontaneous
  Country: VE (occurrence: VE)
  Receive Date: 20150724
  Receipt Date: 20150724
  Transmission Date: 20151125
  Serious: Yes (Hospitalization)
  Sender: FDA-Public Use
  Company Number: PHHY2015VE086538

PATIENT
  Age: 32 Year
  Sex: Male

DRUGS (1)
  1. BENZETACIL [Suspect]
     Active Substance: PENICILLIN G BENZATHINE
     Indication: CHRONIC TONSILLITIS
     Route: 065

REACTIONS (1)
  - Anal abscess [Unknown]

NARRATIVE: CASE EVENT DATE: 20150513
